FAERS Safety Report 8219510-4 (Version None)
Quarter: 2012Q1

REPORT INFORMATION
  Report Type: 
  Country: None (occurrence: None)
  Receive Date: 20120319
  Receipt Date: 20120312
  Transmission Date: 20120608
  Serious: No
  Sender: FDA-Public Use
  Company Number: US-PFIZER INC-2006138738

PATIENT
  Age: 72 Year
  Sex: Female
  Weight: 48.526 kg

DRUGS (6)
  1. ZOLEDRONIC ACID [Concomitant]
     Indication: OSTEOPOROSIS
     Dosage: UNK
  2. SPIRIVA [Concomitant]
     Indication: CHRONIC OBSTRUCTIVE PULMONARY DISEASE
     Dosage: UNK
  3. CHANTIX [Suspect]
     Indication: SMOKING CESSATION THERAPY
     Dosage: UNK
     Route: 048
  4. CHANTIX [Suspect]
     Dosage: 1 MG, 2X/DAY
     Route: 048
  5. ACETYLSALICYLIC ACID [Concomitant]
     Indication: SPINAL OSTEOARTHRITIS
     Dosage: 325 MG, DAILY
  6. ADVAIR DISKUS 100/50 [Concomitant]
     Indication: CHRONIC OBSTRUCTIVE PULMONARY DISEASE
     Dosage: UNK

REACTIONS (7)
  - IRRITABILITY [None]
  - CONSTIPATION [None]
  - NIGHTMARE [None]
  - ABDOMINAL DISCOMFORT [None]
  - INSOMNIA [None]
  - NAUSEA [None]
  - NERVOUSNESS [None]
